FAERS Safety Report 7905982-9 (Version None)
Quarter: 2011Q4

REPORT INFORMATION
  Report Type: 
  Country: None (occurrence: None)
  Receive Date: 20111110
  Receipt Date: 20111110
  Transmission Date: 20120403
  Serious: Yes (Death)
  Sender: FDA-Public Use
  Company Number: JP-BAYER-2011-108602

PATIENT
  Age: 62 Year
  Sex: Male

DRUGS (2)
  1. ANTIBIOTICS [Concomitant]
     Dosage: UNK
     Route: 065
  2. NEXAVAR [Suspect]
     Indication: HEPATIC NEOPLASM MALIGNANT
     Dosage: 400 MG, BID
     Route: 048
     Dates: start: 20110805, end: 20111014

REACTIONS (6)
  - RENAL FAILURE [None]
  - ALTERED STATE OF CONSCIOUSNESS [None]
  - JAUNDICE [None]
  - PLATELET COUNT DECREASED [None]
  - THROMBOTIC THROMBOCYTOPENIC PURPURA [None]
  - LIVER DISORDER [None]
